FAERS Safety Report 8590696-5 (Version None)
Quarter: 2012Q3

REPORT INFORMATION
  Report Type: 
  Country: None (occurrence: None)
  Receive Date: 20120813
  Receipt Date: 20120807
  Transmission Date: 20120928
  Serious: Yes (Other)
  Sender: FDA-Public Use
  Company Number: FR-ROCHE-1098857

PATIENT
  Sex: Female
  Weight: 65 kg

DRUGS (14)
  1. FENOFIBRATE [Concomitant]
     Dosage: 160 MG/D
     Route: 048
  2. MABTHERA [Suspect]
     Dosage: 860 MG/D
     Route: 042
     Dates: start: 20120418, end: 20120614
  3. CYAMEMAZINE [Concomitant]
     Dosage: 20 DROPS/D
     Route: 048
  4. LACTULOSE [Concomitant]
     Dosage: 20 G/D
     Route: 048
  5. NOMEGESTROL ACETATE [Concomitant]
     Route: 048
  6. MABTHERA [Suspect]
     Dates: start: 20120405
  7. FLUDARABINE PHOSPHATE [Suspect]
     Indication: CHRONIC LYMPHOCYTIC LEUKAEMIA
     Dosage: 69 MG/D
     Route: 048
     Dates: start: 20120419, end: 20120616
  8. MABTHERA [Suspect]
     Dates: start: 20120411
  9. CYCLOPHOSPHAMIDE [Suspect]
     Indication: CHRONIC LYMPHOCYTIC LEUKAEMIA
     Dosage: 430 MG/D
     Route: 048
     Dates: start: 20120419, end: 20120616
  10. VALPROIC ACID [Concomitant]
     Dosage: 1G/D
     Route: 048
     Dates: start: 19980101
  11. PREGABALIN [Concomitant]
     Dosage: 50 MG/D
     Route: 048
  12. MABTHERA [Suspect]
     Indication: CHRONIC LYMPHOCYTIC LEUKAEMIA
     Route: 041
     Dates: start: 20120328, end: 20120329
  13. MABTHERA [Suspect]
     Dates: start: 20120330
  14. HYDROXYZINE [Concomitant]
     Dosage: 25 MG/D
     Route: 048

REACTIONS (1)
  - APLASIA PURE RED CELL [None]
